FAERS Safety Report 23178933 (Version 5)
Quarter: 2024Q1

REPORT INFORMATION
  Report Type: Spontaneous
  Country: IN (occurrence: IN)
  Receive Date: 20231113
  Receipt Date: 20240325
  Transmission Date: 20240409
  Serious: Yes (Other)
  Sender: FDA-Public Use
  Company Number: IN-PFIZER INC-PV202300049867

PATIENT
  Age: 68 Year
  Sex: Female
  Weight: 42.1 kg

DRUGS (13)
  1. DACOMITINIB [Suspect]
     Active Substance: DACOMITINIB
     Dosage: 30 MG, 1X/DAY
     Route: 048
     Dates: start: 20230113
  2. DACOMITINIB [Suspect]
     Active Substance: DACOMITINIB
     Dosage: 30 MG
     Dates: start: 20230224
  3. MEGASTY [Concomitant]
     Dosage: 160 MG, 2X/DAY
  4. CCM [CALCIUM CITRATE MALATE;COLECALCIFEROL;FOLIC ACID] [Concomitant]
     Dosage: 500 MG, 1X/DAY
  5. ZOLEDRONIC ACID [Concomitant]
     Active Substance: ZOLEDRONIC ACID
     Dosage: 4MG IN 100ML NX OVER 20MIN TODAY
  6. METOCLOPRAMIDE HYDROCHLORIDE [Concomitant]
     Active Substance: METOCLOPRAMIDE HYDROCHLORIDE
     Dosage: 1 TAB SOS (MAX 3TABS/DAY)
  7. FAMOTIDINE [Concomitant]
     Active Substance: FAMOTIDINE
     Dosage: 40MG SOS IF DYSPEPSIA
  8. CLINDAMYCIN [Concomitant]
     Active Substance: CLINDAMYCIN
     Dosage: 1% CLINDAMYCIN CREAM FOR L/A
  9. ULTRACET [Concomitant]
     Active Substance: ACETAMINOPHEN\TRAMADOL HYDROCHLORIDE
     Dosage: TAB ULTRACET SOS FOR PAIN
  10. CREMAFFIN [Concomitant]
     Dosage: 2TSP ODHS SOS IF CONSTIPATION
  11. MUCORAL [Concomitant]
     Dosage: UNK, 2X/DAY
  12. MUCOBENZ [Concomitant]
     Dosage: UNK, 2X/DAY
  13. RESWAS [Concomitant]
     Dosage: SYP RESWAS 2 TSP PO TID
     Route: 048

REACTIONS (17)
  - Hypothyroidism [Unknown]
  - Dysphagia [Recovered/Resolved]
  - Mucosal inflammation [Unknown]
  - Angular cheilitis [Unknown]
  - Diverticulum intestinal [Unknown]
  - Anxiety [Unknown]
  - Arthralgia [Unknown]
  - Fatigue [Unknown]
  - Dyspepsia [Recovered/Resolved]
  - Decreased appetite [Recovered/Resolved]
  - Oral discomfort [Recovered/Resolved]
  - Oesophageal pain [Recovered/Resolved]
  - Tongue eruption [Unknown]
  - Chest pain [Unknown]
  - Dyspnoea [Unknown]
  - Nausea [Unknown]
  - Vomiting [Unknown]

NARRATIVE: CASE EVENT DATE: 20230201
